FAERS Safety Report 7629897-9 (Version None)
Quarter: 2011Q3

REPORT INFORMATION
  Report Type: 
  Country: None (occurrence: None)
  Receive Date: 20110722
  Receipt Date: 20110714
  Transmission Date: 20111222
  Serious: Yes (Hospitalization)
  Sender: FDA-Public Use
  Company Number: US-JNJFOC-20110706396

PATIENT
  Age: 60 Year
  Sex: Female

DRUGS (7)
  1. INVEGA SUSTENNA [Suspect]
     Route: 030
     Dates: start: 20110513
  2. INVEGA [Suspect]
     Indication: PRODUCT USED FOR UNKNOWN INDICATION
     Route: 048
  3. COGENTIN [Concomitant]
     Indication: TARDIVE DYSKINESIA
     Dosage: 3 MG/1 MG PILL/3 TIMES A DAY
     Route: 048
  4. EFFEXOR XR [Concomitant]
     Indication: SCHIZOAFFECTIVE DISORDER
     Dosage: 225 MG (75 MG/3 TIMES A DAY)
     Route: 048
  5. KLONOPIN [Concomitant]
     Indication: SCHIZOAFFECTIVE DISORDER
     Dosage: 1.5 MG/0.5 MG THREE TIMES A DAY
     Route: 048
  6. INVEGA SUSTENNA [Suspect]
     Indication: SCHIZOAFFECTIVE DISORDER
     Route: 030
  7. INVEGA SUSTENNA [Suspect]
     Route: 030
     Dates: start: 20110608

REACTIONS (4)
  - CONDITION AGGRAVATED [None]
  - HALLUCINATION [None]
  - DELUSION [None]
  - PARANOIA [None]
